FAERS Safety Report 4629118-5 (Version None)
Quarter: 2005Q2

REPORT INFORMATION
  Report Type: 
  Country: None (occurrence: None)
  Receive Date: 20050404
  Receipt Date: 20050404
  Transmission Date: 20051028
  Serious: Yes (Hospitalization, Other)
  Sender: FDA-Public Use
  Company Number: None

PATIENT
  Age: 9 Year
  Sex: Male
  Weight: 48.1 kg

DRUGS (15)
  1. CYCLOPHOSPHAMIDE [Suspect]
     Indication: ACUTE LYMPHOCYTIC LEUKAEMIA
     Dosage: SEE LOAD MAPS
  2. CYCLOPHOSPHAMIDE [Suspect]
     Indication: CHEMOTHERAPY
     Dosage: SEE LOAD MAPS
  3. THIOGUANINE [Suspect]
     Indication: ACUTE LYMPHOCYTIC LEUKAEMIA
     Dosage: SEE LOAD MAP
  4. THIOGUANINE [Suspect]
     Indication: CHEMOTHERAPY
     Dosage: SEE LOAD MAP
  5. METHOTREXATE [Suspect]
     Indication: ACUTE LYMPHOCYTIC LEUKAEMIA
     Dosage: SEE LOAD MAP
  6. METHOTREXATE [Suspect]
     Indication: CHEMOTHERAPY
     Dosage: SEE LOAD MAP
  7. CYTARABINE [Suspect]
     Indication: ACUTE LYMPHOCYTIC LEUKAEMIA
     Dosage: SEE LOAD MAPS
  8. CYTARABINE [Suspect]
     Indication: CHEMOTHERAPY
     Dosage: SEE LOAD MAPS
  9. VINCRISTINE [Suspect]
     Indication: ACUTE LYMPHOCYTIC LEUKAEMIA
     Dosage: SEE LOAD MAPS
  10. VINCRISTINE [Suspect]
     Indication: CHEMOTHERAPY
     Dosage: SEE LOAD MAPS
  11. PEGSPAR [Suspect]
     Indication: ACUTE LYMPHOCYTIC LEUKAEMIA
  12. PEGSPAR [Suspect]
     Indication: CHEMOTHERAPY
  13. ZOFRAN [Concomitant]
  14. GLUTOMINE [Concomitant]
  15. PEPCID [Concomitant]

REACTIONS (6)
  - ABDOMINAL DISTENSION [None]
  - EPISTAXIS [None]
  - HEPATOTOXICITY [None]
  - PHARYNGOLARYNGEAL PAIN [None]
  - PLEURAL EFFUSION [None]
  - PYREXIA [None]
